FAERS Safety Report 12684674 (Version 2)
Quarter: 2016Q3

REPORT INFORMATION
  Report Type: Spontaneous
  Country: GB (occurrence: GB)
  Receive Date: 20160825
  Receipt Date: 20160916
  Transmission Date: 20161109
  Serious: Yes (Hospitalization, Other)
  Sender: FDA-Public Use
  Company Number: PHHY2016GB115564

PATIENT
  Age: 54 Year
  Sex: Female

DRUGS (4)
  1. ADOPORT [Suspect]
     Active Substance: TACROLIMUS
     Indication: IMMUNOSUPPRESSION
     Dosage: 0.5 MG, UNK
     Route: 065
  2. PREDNISOLONE. [Suspect]
     Active Substance: PREDNISOLONE
     Indication: IMMUNOSUPPRESSION
     Dosage: N
     Route: 065
  3. MYFENAX [Suspect]
     Active Substance: MYCOPHENOLATE MOFETIL
     Indication: IMMUNOSUPPRESSION
     Dosage: 500 MG, UNK
     Route: 065
  4. ADOPORT [Suspect]
     Active Substance: TACROLIMUS
     Route: 065

REACTIONS (2)
  - Thrombosis [Unknown]
  - Malaise [Unknown]

NARRATIVE: CASE EVENT DATE: 2016
